FAERS Safety Report 19905547 (Version 1)
Quarter: 2021Q3

REPORT INFORMATION
  Report Type: Spontaneous
  Country: CN (occurrence: CN)
  Receive Date: 20210930
  Receipt Date: 20210930
  Transmission Date: 20211014
  Serious: Yes (Hospitalization)
  Sender: FDA-Public Use
  Company Number: CN-PFIZER INC-202101259902

PATIENT
  Age: 20 Year
  Sex: Female
  Weight: 55 kg

DRUGS (1)
  1. METHOTREXATE. [Suspect]
     Active Substance: METHOTREXATE
     Indication: ABORTION
     Dosage: 20 MG, 1X/DAY
     Route: 042
     Dates: start: 20210904, end: 20210908

REACTIONS (7)
  - Off label use [Unknown]
  - Vulvovaginal pain [Recovering/Resolving]
  - Mouth ulceration [Recovering/Resolving]
  - Pyrexia [Unknown]
  - Vulvovaginal erythema [Recovering/Resolving]
  - Vulvovaginal swelling [Recovering/Resolving]
  - Drug-induced liver injury [Recovering/Resolving]

NARRATIVE: CASE EVENT DATE: 20210904
